FAERS Safety Report 7491833-6 (Version None)
Quarter: 2011Q2

REPORT INFORMATION
  Report Type: 
  Country: None (occurrence: None)
  Receive Date: 20110519
  Receipt Date: 20110509
  Transmission Date: 20111010
  Serious: Yes (Other)
  Sender: FDA-Public Use
  Company Number: FR-TEVA-281848ISR

PATIENT
  Sex: Male

DRUGS (2)
  1. LORATADINE [Suspect]
     Indication: RHINITIS ALLERGIC
     Dosage: 10 MILLIGRAM; IN THE EVENING
     Route: 048
  2. NASACORT 55 [Concomitant]

REACTIONS (1)
  - LEUKOPENIA [None]
